FAERS Safety Report 5247061-8 (Version None)
Quarter: 2007Q1

REPORT INFORMATION
  Report Type: 
  Country: None (occurrence: None)
  Receive Date: 20070221
  Receipt Date: 20070212
  Transmission Date: 20070707
  Serious: No
  Sender: FDA-Public Use
  Company Number: 230619K07USA

PATIENT
  Age: 47 Year
  Sex: Female

DRUGS (5)
  1. REBIF [Suspect]
     Indication: MULTIPLE SCLEROSIS
     Dosage: 44 MCG, 3 IN 1 WEEKS, SUBCUTANEOUS
     Route: 058
     Dates: start: 20061101
  2. ASPIRIN [Concomitant]
  3. METOPROLOL (METOPROLOL /00376901/) [Concomitant]
  4. LOTENSIN [Concomitant]
  5. LIPITOR [Concomitant]

REACTIONS (8)
  - HEART RATE INCREASED [None]
  - HYPOAESTHESIA [None]
  - HYPOTHYROIDISM [None]
  - MULTIPLE SCLEROSIS [None]
  - PRURITUS [None]
  - PULSE ABSENT [None]
  - RASH [None]
  - URTICARIA [None]
